FAERS Safety Report 9344237 (Version 1)
Quarter: 2013Q2

REPORT INFORMATION
  Report Type: Spontaneous
  Country: AU (occurrence: AU)
  Receive Date: 20130612
  Receipt Date: 20130612
  Transmission Date: 20140414
  Serious: Yes (Other)
  Sender: FDA-Public Use
  Company Number: AU-JNJFOC-20130601668

PATIENT
  Sex: 0

DRUGS (2)
  1. INFLIXIMAB, RECOMBINANT [Suspect]
     Indication: PSORIASIS
     Route: 042
  2. INFLIXIMAB, RECOMBINANT [Suspect]
     Indication: PSORIASIS
     Dosage: LOADING DOSE AT WEEKS 0,2, AND 6 WEEKS
     Route: 042

REACTIONS (5)
  - Skin cancer [Unknown]
  - Adverse event [Unknown]
  - Liver function test abnormal [Unknown]
  - Viral upper respiratory tract infection [Unknown]
  - Drug ineffective [Unknown]
